FAERS Safety Report 11018454 (Version 2)
Quarter: 2015Q2

REPORT INFORMATION
  Report Type: Spontaneous
  Country: US (occurrence: US)
  Receive Date: 20150412
  Receipt Date: 20150524
  Transmission Date: 20150821
  Serious: Yes (Other)
  Sender: FDA-Public Use
  Company Number: US-JNJFOC-20130607273

PATIENT

DRUGS (4)
  1. DOXORUBICIN [Suspect]
     Active Substance: DOXORUBICIN
     Indication: NEOPLASM
     Dosage: ON DAYS 1-3
     Route: 041
  2. DEXRAZOXANE. [Suspect]
     Active Substance: DEXRAZOXANE
     Indication: CARDIOVASCULAR EVENT PROPHYLAXIS
     Route: 065
  3. OXALIPLATIN. [Suspect]
     Active Substance: OXALIPLATIN
     Indication: NEOPLASM
     Dosage: IN 250-500 ML OF WATER WITH 5% DEXTROSE, OVER 2 HOURS ON DAY 1 OF A 21 DAY COURSE
     Route: 042
  4. GRANULOCYTE COLONY STIMULATING FACTOR [Concomitant]
     Active Substance: GRANULOCYTE COLONY-STIMULATING FACTOR NOS
     Indication: PROPHYLAXIS
     Route: 065

REACTIONS (2)
  - Cardiotoxicity [Unknown]
  - Product use issue [Unknown]
